FAERS Safety Report 23076267 (Version 2)
Quarter: 2023Q4

REPORT INFORMATION
  Report Type: Report from Study
  Country: US (occurrence: US)
  Receive Date: 20231017
  Receipt Date: 20231017
  Transmission Date: 20240110
  Serious: Yes (Hospitalization)
  Sender: FDA-Public Use
  Company Number: US-Eisai Medical Research-EC-2023-146645

PATIENT
  Age: 53 Year
  Sex: Female

DRUGS (18)
  1. LENVIMA [Suspect]
     Active Substance: LENVATINIB
     Indication: Endometrial cancer
     Route: 048
     Dates: start: 20230218, end: 2023
  2. LENVIMA [Suspect]
     Active Substance: LENVATINIB
     Route: 048
     Dates: start: 20230419, end: 2023
  3. LENVIMA [Suspect]
     Active Substance: LENVATINIB
     Route: 048
     Dates: start: 20230815
  4. IVERMECTIN [Concomitant]
     Active Substance: IVERMECTIN
  5. LIDOCAINE\PRILOCAINE [Concomitant]
     Active Substance: LIDOCAINE\PRILOCAINE
     Dosage: 2.5-2.5%
  6. MORPHINE [Concomitant]
     Active Substance: MORPHINE
  7. ONDANSETRON [Concomitant]
     Active Substance: ONDANSETRON
  8. PANTOPRAZOLE [Concomitant]
     Active Substance: PANTOPRAZOLE
  9. ELIQUIS [Concomitant]
     Active Substance: APIXABAN
  10. FOLIC ACID [Concomitant]
     Active Substance: FOLIC ACID
  11. CLONIDINE [Concomitant]
     Active Substance: CLONIDINE
  12. NORTRIPTYLINE [Concomitant]
     Active Substance: NORTRIPTYLINE
  13. LEVOTHYROXINE [Concomitant]
     Active Substance: LEVOTHYROXINE
  14. LOSARTAN [Concomitant]
     Active Substance: LOSARTAN
  15. NIFEDIPINE [Concomitant]
     Active Substance: NIFEDIPINE
  16. GABAPENTIN [Concomitant]
     Active Substance: GABAPENTIN
  17. PREDNISONE [Concomitant]
     Active Substance: PREDNISONE
  18. CLONAZEPAM [Concomitant]
     Active Substance: CLONAZEPAM

REACTIONS (3)
  - Abdominal hernia [Recovered/Resolved]
  - Abdominal pain upper [Recovered/Resolved]
  - Vomiting [Recovered/Resolved]

NARRATIVE: CASE EVENT DATE: 20230101
